FAERS Safety Report 8367981-5 (Version None)
Quarter: 2012Q2

REPORT INFORMATION
  Report Type: 
  Country: None (occurrence: None)
  Receive Date: 20120517
  Receipt Date: 20120503
  Transmission Date: 20120825
  Serious: Yes (Death, Life-Threatening, Hospitalization, Other)
  Sender: FDA-Public Use
  Company Number: US-MYLANLABS-2009AC000327

PATIENT
  Sex: Female
  Weight: 48.99 kg

DRUGS (26)
  1. LISINOPRIL [Concomitant]
  2. PENTOXIFYLLINE [Concomitant]
  3. ASPIRIN [Concomitant]
  4. DIGOXIN [Suspect]
     Indication: HYPERTENSION
     Route: 048
     Dates: start: 20040830, end: 20071017
  5. SULFAMETHOXAZOLE [Concomitant]
  6. DETROL [Concomitant]
  7. PROTONIX [Concomitant]
  8. ISOSORBIDE DINITRATE [Concomitant]
  9. MECLIZINE [Concomitant]
  10. NORVASC [Concomitant]
  11. HYDROCODONE [Concomitant]
  12. ZESTRIL [Concomitant]
  13. ZOSYN [Concomitant]
  14. LEVOTHROID [Concomitant]
  15. ALDACTONE [Concomitant]
  16. MECLIZINE [Concomitant]
  17. LIPITOR [Concomitant]
  18. CLORAZEPATE DIPOTASSIUM [Concomitant]
  19. CIPROFLOXACIN [Concomitant]
  20. FUROSEMIDE [Concomitant]
  21. ZITHROMAX [Concomitant]
  22. LOVENOX [Concomitant]
  23. VASOTEC [Concomitant]
  24. CEPHALEXIN [Concomitant]
  25. ROCEPHIN [Concomitant]
  26. INSULIN [Concomitant]

REACTIONS (72)
  - ECONOMIC PROBLEM [None]
  - APNOEA [None]
  - AGITATION [None]
  - CORONARY ARTERY DISEASE [None]
  - HYPOTHYROIDISM [None]
  - DYSPNOEA EXERTIONAL [None]
  - FATIGUE [None]
  - DIZZINESS [None]
  - OSTEOARTHRITIS [None]
  - ABDOMINAL DISTENSION [None]
  - LUNG DISORDER [None]
  - RHONCHI [None]
  - TOXICITY TO VARIOUS AGENTS [None]
  - UNRESPONSIVE TO STIMULI [None]
  - CHEST PAIN [None]
  - AORTIC ANEURYSM [None]
  - ABDOMINAL DISCOMFORT [None]
  - HYPERLIPIDAEMIA [None]
  - DECUBITUS ULCER [None]
  - SCAB [None]
  - MALAISE [None]
  - WHEEZING [None]
  - BRADYCARDIA [None]
  - HYPOTENSION [None]
  - RESPIRATION ABNORMAL [None]
  - COR PULMONALE [None]
  - DEMENTIA [None]
  - RENAL DISORDER [None]
  - OSTEOPOROSIS [None]
  - ABDOMINAL PAIN [None]
  - BREATH SOUNDS ABNORMAL [None]
  - ILL-DEFINED DISORDER [None]
  - DEATH [None]
  - HYPERCAPNIA [None]
  - PNEUMONIA ASPIRATION [None]
  - PERIPHERAL VASCULAR DISORDER [None]
  - LEFT VENTRICULAR HYPERTROPHY [None]
  - INTERMITTENT CLAUDICATION [None]
  - ASTHENIA [None]
  - RENAL FAILURE CHRONIC [None]
  - LETHARGY [None]
  - PHYSICAL EXAMINATION ABNORMAL [None]
  - PAIN [None]
  - CONFUSIONAL STATE [None]
  - SQUAMOUS CELL CARCINOMA [None]
  - WOUND [None]
  - ULTRASOUND DOPPLER ABNORMAL [None]
  - COUGH [None]
  - DYSPNOEA [None]
  - RESPIRATORY FAILURE [None]
  - HYPERTENSION [None]
  - ATRIOVENTRICULAR BLOCK SECOND DEGREE [None]
  - CARDIAC VALVE DISEASE [None]
  - HYPERTENSIVE HEART DISEASE [None]
  - ANGIOPATHY [None]
  - FLANK PAIN [None]
  - VENOOCCLUSIVE DISEASE [None]
  - PLEURAL DISORDER [None]
  - EMOTIONAL DISTRESS [None]
  - PNEUMONIA [None]
  - BLOOD PRESSURE DECREASED [None]
  - DEHYDRATION [None]
  - ATELECTASIS [None]
  - CARDIAC FAILURE CONGESTIVE [None]
  - CHRONIC OBSTRUCTIVE PULMONARY DISEASE [None]
  - RENAL FAILURE ACUTE [None]
  - ANAEMIA [None]
  - NAUSEA [None]
  - CARDIOMEGALY [None]
  - DILATATION ATRIAL [None]
  - OEDEMA [None]
  - CAROTID ARTERY DISEASE [None]
